FAERS Safety Report 17870794 (Version 1)
Quarter: 2020Q2

REPORT INFORMATION
  Report Type: Spontaneous
  Country: US (occurrence: US)
  Receive Date: 20200607
  Receipt Date: 20200607
  Transmission Date: 20200714
  Serious: No
  Sender: FDA-Public Use
  Company Number: None

PATIENT
  Age: 71 Year
  Sex: Female
  Weight: 72.9 kg

DRUGS (17)
  1. GLIPIZIDE 5MG [Suspect]
     Active Substance: GLIPIZIDE
  2. VITAMIN D3 [Concomitant]
     Active Substance: CHOLECALCIFEROL
  3. CALCIUM [Concomitant]
     Active Substance: CALCIUM
  4. VITAMIN C [Concomitant]
     Active Substance: ASCORBIC ACID
  5. GLIMEPIRIDE 1MG [Suspect]
     Active Substance: GLIMEPIRIDE
     Indication: DIABETES MELLITUS
     Dosage: ?
     Route: 048
     Dates: start: 20200423, end: 20200425
  6. HYDROCODONE [Concomitant]
     Active Substance: HYDROCODONE
  7. BLOOD PRESSURE MONITOR [Concomitant]
  8. CERVICAL TRACTION [Concomitant]
  9. EMS [Concomitant]
  10. AMLODIPINE [Concomitant]
     Active Substance: AMLODIPINE BESYLATE
  11. TYLENOL [Concomitant]
     Active Substance: ACETAMINOPHEN
  12. CENTRUM SILVER [Concomitant]
     Active Substance: MINERALS\VITAMINS
  13. FAMOTIDINE. [Concomitant]
     Active Substance: FAMOTIDINE
  14. TENS [Concomitant]
  15. VITAMIN B [Concomitant]
     Active Substance: VITAMIN B
  16. ALPRAZOLAM. [Concomitant]
     Active Substance: ALPRAZOLAM
  17. DIABETES GLUCOSE MONITOR [Concomitant]

REACTIONS (9)
  - Abdominal pain upper [None]
  - Blood glucose decreased [None]
  - Tremor [None]
  - Nervousness [None]
  - Blood glucose increased [None]
  - Product substitution issue [None]
  - Diarrhoea [None]
  - Drug ineffective [None]
  - Product size issue [None]

NARRATIVE: CASE EVENT DATE: 20200607
